FAERS Safety Report 5636368-8 (Version None)
Quarter: 2008Q1

REPORT INFORMATION
  Report Type: 
  Country: None (occurrence: None)
  Receive Date: 20080225
  Receipt Date: 20071031
  Transmission Date: 20080703
  Serious: No
  Sender: FDA-Public Use
  Company Number: A0690767A

PATIENT
  Age: 56 Year
  Sex: Female

DRUGS (2)
  1. VERAMYST [Suspect]
     Dosage: 4SPR PER DAY
     Route: 045
     Dates: start: 20070601
  2. NO CONCURRENT MEDICATION [Concomitant]

REACTIONS (3)
  - ARTHRITIS [None]
  - PAIN IN EXTREMITY [None]
  - TENDERNESS [None]
